FAERS Safety Report 21591036 (Version 1)
Quarter: 2022Q4

REPORT INFORMATION
  Report Type: Spontaneous
  Country: US (occurrence: None)
  Receive Date: 20221111
  Receipt Date: 20221111
  Transmission Date: 20230113
  Serious: Yes (Hospitalization)
  Sender: FDA-Public Use
  Company Number: None

PATIENT
  Age: 62 Year
  Sex: Female
  Weight: 83.9 kg

DRUGS (2)
  1. VANCOMYCIN [Suspect]
     Active Substance: VANCOMYCIN
     Indication: Osteomyelitis
     Dosage: FREQUENCY : TWICE A DAY;?
     Route: 042
     Dates: start: 20221023, end: 20221031
  2. VANCOMYCIN [Suspect]
     Active Substance: VANCOMYCIN
     Indication: Osteomyelitis
     Dosage: FREQUENCY : TWICE A DAY;?
     Route: 042
     Dates: start: 20221023, end: 20221031

REACTIONS (13)
  - Therapy interrupted [None]
  - Balance disorder [None]
  - Constipation [None]
  - Drug level above therapeutic [None]
  - Headache [None]
  - Tremor [None]
  - Nausea [None]
  - Vomiting [None]
  - Acute kidney injury [None]
  - Pain [None]
  - Adverse drug reaction [None]
  - Inadequate analgesia [None]
  - Nephropathy toxic [None]

NARRATIVE: CASE EVENT DATE: 20221103
